FAERS Safety Report 15339808 (Version 2)
Quarter: 2018Q4

REPORT INFORMATION
  Report Type: Spontaneous
  Country: JP (occurrence: JP)
  Receive Date: 20180831
  Receipt Date: 20181214
  Transmission Date: 20190204
  Serious: Yes (Death, Life-Threatening)
  Sender: FDA-Public Use
  Company Number: JP-BAYER-2018-164141

PATIENT
  Age: 75 Year
  Sex: Male

DRUGS (9)
  1. URIEF [Concomitant]
     Active Substance: SILODOSIN
     Dosage: DAILY DOSE 4 MG
     Route: 048
  2. SENNARIDE [Concomitant]
     Active Substance: SENNOSIDES A AND B
     Dosage: DAILY DOSE 24 MG
     Route: 048
  3. ALFAROL [Concomitant]
     Active Substance: ALFACALCIDOL
     Dosage: DAILY DOSE .5 MG
     Route: 048
  4. XTANDI [Concomitant]
     Active Substance: ENZALUTAMIDE
     Dosage: DAILY DOSE 80 MG
     Route: 048
  5. LOXONIN [Concomitant]
     Active Substance: LOXOPROFEN SODIUM
     Dosage: DAILY DOSE 180 MG
     Route: 048
  6. XOFIGO [Suspect]
     Active Substance: RADIUM RA-223 DICHLORIDE
     Indication: HORMONE-REFRACTORY PROSTATE CANCER
  7. ASPARA-CA [Concomitant]
     Active Substance: CALCIUM ASPARTATE
     Dosage: DAILY DOSE 1200 MG
     Route: 048
  8. XOFIGO [Suspect]
     Active Substance: RADIUM RA-223 DICHLORIDE
     Indication: METASTASES TO BONE
     Dosage: DAILY DOSE 55 KBQ/KG ONCE
     Route: 042
     Dates: start: 20180808, end: 20180808
  9. NEXIUM 1-2-3 [Concomitant]
     Active Substance: AMOXICILLIN\CLARITHROMYCIN\ESOMEPRAZOLE
     Dosage: DAILY DOSE 20 MG
     Route: 048

REACTIONS (2)
  - Cardio-respiratory arrest [Fatal]
  - Cardiac failure acute [Unknown]

NARRATIVE: CASE EVENT DATE: 20180831
